FAERS Safety Report 19927850 (Version 1)
Quarter: 2021Q4

REPORT INFORMATION
  Report Type: Spontaneous
  Country: DE (occurrence: DE)
  Receive Date: 20211007
  Receipt Date: 20211007
  Transmission Date: 20220304
  Serious: Yes (Other)
  Sender: FDA-Public Use
  Company Number: DE-SANOFI-00792530

PATIENT
  Sex: Female

DRUGS (1)
  1. LEMTRADA [Suspect]
     Active Substance: ALEMTUZUMAB

REACTIONS (9)
  - Paraparesis [Unknown]
  - Muscle spasticity [Unknown]
  - Abdominal rigidity [Unknown]
  - Gait disturbance [Unknown]
  - Condition aggravated [Unknown]
  - Palpitations [Unknown]
  - Hypoaesthesia [Unknown]
  - Blister [Unknown]
  - Dizziness [Unknown]
